FAERS Safety Report 5628742-0 (Version None)
Quarter: 2008Q1

REPORT INFORMATION
  Report Type: 
  Country: None (occurrence: None)
  Receive Date: 20080215
  Receipt Date: 20080205
  Transmission Date: 20080703
  Serious: Yes (Other)
  Sender: FDA-Public Use
  Company Number: US-PFIZER INC-2008012476

PATIENT
  Sex: Female
  Weight: 92.5 kg

DRUGS (17)
  1. LYRICA [Suspect]
     Indication: PAIN
  2. LYRICA [Suspect]
     Indication: HYPOAESTHESIA
  3. LYRICA [Suspect]
     Indication: BURNING SENSATION
  4. LYRICA [Suspect]
     Indication: PARAESTHESIA
  5. REQUIP [Concomitant]
     Indication: RESTLESS LEGS SYNDROME
  6. ATIVAN [Concomitant]
  7. FENTANYL [Concomitant]
  8. OXYMORPHONE HYDROCHLORIDE [Concomitant]
     Indication: PAIN
  9. PREVACID [Concomitant]
  10. ALL OTHER THERAPEUTIC PRODUCTS [Concomitant]
     Indication: RHEUMATOID ARTHRITIS
  11. POTASSIUM CHLORIDE [Concomitant]
  12. K-DUR 10 [Concomitant]
  13. HYDROCHLOROTHIAZIDE [Concomitant]
  14. TENORMIN [Concomitant]
  15. ASPIRIN [Concomitant]
  16. PROCARDIA [Concomitant]
  17. TRAZODONE HCL [Concomitant]

REACTIONS (13)
  - ABASIA [None]
  - AGEUSIA [None]
  - BALANCE DISORDER [None]
  - CHILLS [None]
  - GLOSSITIS [None]
  - HYPERSOMNIA [None]
  - ILL-DEFINED DISORDER [None]
  - JOINT SWELLING [None]
  - NASOPHARYNGITIS [None]
  - OEDEMA PERIPHERAL [None]
  - PRODUCTIVE COUGH [None]
  - THROAT IRRITATION [None]
  - WEIGHT INCREASED [None]
